FAERS Safety Report 9445560 (Version 1)
Quarter: 2013Q3

REPORT INFORMATION
  Report Type: Spontaneous
  Country: US (occurrence: US)
  Receive Date: 20130807
  Receipt Date: 20130807
  Transmission Date: 20140515
  Serious: No
  Sender: FDA-Public Use
  Company Number: US-009507513-1308USA002281

PATIENT
  Sex: Male

DRUGS (10)
  1. JANUVIA [Suspect]
     Indication: DIABETES MELLITUS
     Dosage: 50 MG, QD
     Route: 048
     Dates: start: 201301
  2. METFORMIN [Concomitant]
     Dosage: 850 MG, BID
  3. ASPIRIN [Concomitant]
     Dosage: 81 MG, QD
  4. ALPRAZOLAM [Concomitant]
     Dosage: 0.05 MG, QD
  5. ALLOPURINOL [Concomitant]
     Dosage: 300 MG, QD
  6. CARVEDILOL [Concomitant]
     Dosage: 25 MG, UNK
  7. DARBEPOETIN ALFA [Concomitant]
     Dosage: 150 MG, BIW
  8. ENALAPRIL MALEATE [Concomitant]
     Dosage: 20 MG, BID
  9. FINASTERIDE [Concomitant]
     Dosage: 5 MG, QD
  10. FELODIPINE [Concomitant]
     Dosage: 5 MG, QD

REACTIONS (4)
  - Fatigue [Unknown]
  - Asthenia [Unknown]
  - Heart rate increased [Unknown]
  - Headache [Unknown]
